FAERS Safety Report 9521585 (Version 1)
Quarter: 2013Q3

REPORT INFORMATION
  Report Type: Spontaneous
  Country: US (occurrence: None)
  Receive Date: 20130911
  Receipt Date: 20130911
  Transmission Date: 20140515
  Serious: No
  Sender: FDA-Public Use
  Company Number: AEUSA201300156

PATIENT
  Age: 78 Year
  Sex: Male
  Weight: 72.58 kg

DRUGS (4)
  1. GAMUNEX-C (10 PCT) [Suspect]
     Indication: CHRONIC INFLAMMATORY DEMYELINATING POLYRADICULONEUROPATHY
     Route: 042
     Dates: start: 2012
  2. BENEDRYL [Concomitant]
  3. LEVOTHYROXINE [Concomitant]
  4. GAMUNEX [Concomitant]

REACTIONS (2)
  - Abdominal pain upper [None]
  - Self-medication [None]
